FAERS Safety Report 9580850 (Version 1)
Quarter: 2013Q4

REPORT INFORMATION
  Report Type: Spontaneous
  Country: US (occurrence: None)
  Receive Date: 20131001
  Receipt Date: 20131001
  Transmission Date: 20140711
  Serious: Yes (Hospitalization)
  Sender: FDA-Public Use
  Company Number: None

PATIENT
  Age: 43 Year
  Sex: Female
  Weight: 56.7 kg

DRUGS (3)
  1. CIPRO [Suspect]
     Indication: URINARY TRACT INFECTION
     Dosage: 500 MG, 1 TWICE DAILY
     Route: 048
     Dates: start: 20130526, end: 20130529
  2. GABAPENTIN [Concomitant]
  3. MULTI VITAMINS [Concomitant]

REACTIONS (3)
  - Neuralgia [None]
  - Panic attack [None]
  - Quality of life decreased [None]
